FAERS Safety Report 5869872-8 (Version None)
Quarter: 2008Q3

REPORT INFORMATION
  Report Type: 
  Country: None (occurrence: None)
  Receive Date: 20080902
  Receipt Date: 20080819
  Transmission Date: 20090109
  Serious: Yes (Hospitalization)
  Sender: FDA-Public Use
  Company Number: 2008AL005561

PATIENT
  Age: 66 Year
  Sex: Female

DRUGS (1)
  1. DIGOXIN [Suspect]
     Indication: CARDIAC DISORDER
     Dosage: DAILY,PO
     Route: 048
     Dates: start: 20060101, end: 20080101

REACTIONS (3)
  - CARDIAC PACEMAKER INSERTION [None]
  - CONFUSIONAL STATE [None]
  - OVERDOSE [None]
